FAERS Safety Report 11982909 (Version 3)
Quarter: 2016Q2

REPORT INFORMATION
  Report Type: Report from Study
  Country: US (occurrence: US)
  Receive Date: 20160201
  Receipt Date: 20160505
  Transmission Date: 20160815
  Serious: Yes (Hospitalization, Other)
  Sender: FDA-Public Use
  Company Number: US-BAYER-2015-445408

PATIENT
  Age: 61 Year
  Sex: Male
  Weight: 130.61 kg

DRUGS (17)
  1. DEXAMETHASONE. [Concomitant]
     Active Substance: DEXAMETHASONE
     Indication: PAIN
     Dosage: 2 DF, QD
     Route: 048
  2. COMPAZINE [Concomitant]
     Active Substance: PROCHLORPERAZINE MALEATE
  3. NEXAVAR [Suspect]
     Active Substance: SORAFENIB
     Indication: HEPATOCELLULAR CARCINOMA
     Dosage: 400 MG, BID
     Route: 048
     Dates: end: 20160426
  4. DEXAMETHASONE. [Concomitant]
     Active Substance: DEXAMETHASONE
     Indication: PAIN
     Dosage: 2 DF, QD
     Route: 048
  5. LISINOPRIL. [Concomitant]
     Active Substance: LISINOPRIL
     Indication: HYPERTENSION
     Dosage: 10 MG, QD
     Dates: start: 20051207
  6. IBUPROFEN. [Concomitant]
     Active Substance: IBUPROFEN
     Indication: PAIN
  7. NADOLOL. [Concomitant]
     Active Substance: NADOLOL
     Dosage: 80 MG, TID
     Dates: start: 201601
  8. OMEPRAZOLE. [Concomitant]
     Active Substance: OMEPRAZOLE
  9. LISINOPRIL. [Concomitant]
     Active Substance: LISINOPRIL
     Indication: HYPERTENSION
     Dosage: 5 MG, QD
  10. NEXAVAR [Suspect]
     Active Substance: SORAFENIB
     Indication: HEPATOCELLULAR CARCINOMA
     Dosage: 400 MG, BID
     Route: 048
     Dates: start: 20160122
  11. MULTIVITAMIN [Concomitant]
     Active Substance: VITAMINS
     Dosage: 1 DF, QD
     Route: 048
  12. NEXAVAR [Suspect]
     Active Substance: SORAFENIB
     Indication: HEPATOCELLULAR CARCINOMA
     Dosage: 400 MG, BID
     Route: 048
     Dates: end: 20160116
  13. LISINOPRIL. [Concomitant]
     Active Substance: LISINOPRIL
     Indication: HYPERTENSION
     Dosage: 5 MG, QD
     Route: 048
     Dates: start: 20151019
  14. NEXAVAR [Suspect]
     Active Substance: SORAFENIB
     Indication: HEPATOCELLULAR CARCINOMA
     Dosage: 400 MG, BID
     Route: 048
     Dates: start: 20151007
  15. OXYCODONE [Concomitant]
     Active Substance: OXYCODONE
     Indication: PAIN
     Route: 048
  16. HYDROMORPHONE [Concomitant]
     Active Substance: HYDROMORPHONE
  17. ENOXAPARIN [Concomitant]
     Active Substance: ENOXAPARIN
     Indication: ANTICOAGULANT THERAPY

REACTIONS (19)
  - Dysphonia [Not Recovered/Not Resolved]
  - Fatigue [None]
  - Weight decreased [Not Recovered/Not Resolved]
  - Limb discomfort [Unknown]
  - Rash [None]
  - Decreased appetite [Not Recovered/Not Resolved]
  - Fatigue [Unknown]
  - Rash [Unknown]
  - Atrial fibrillation [Recovered/Resolved]
  - Blood pressure increased [Recovering/Resolving]
  - Pain in extremity [Recovering/Resolving]
  - Headache [Unknown]
  - Dizziness [None]
  - Palpitations [Recovered/Resolved]
  - Hyperkeratosis [None]
  - Palmar-plantar erythrodysaesthesia syndrome [None]
  - Dry mouth [Not Recovered/Not Resolved]
  - Abdominal discomfort [Not Recovered/Not Resolved]
  - Diarrhoea [Unknown]

NARRATIVE: CASE EVENT DATE: 201510
